FAERS Safety Report 18513111 (Version 1)
Quarter: 2020Q4

REPORT INFORMATION
  Report Type: Spontaneous
  Country: US (occurrence: US)
  Receive Date: 20201117
  Receipt Date: 20201117
  Transmission Date: 20210114
  Serious: No
  Sender: FDA-Public Use
  Company Number: US-NALPROPION PHARMACEUTICALS INC.-2020-010082

PATIENT
  Age: 61 Year
  Sex: Male
  Weight: 118.82 kg

DRUGS (2)
  1. CONTRAVE [Suspect]
     Active Substance: BUPROPION HYDROCHLORIDE\NALTREXONE HYDROCHLORIDE
     Indication: OBESITY
     Dosage: 2 PILLS IN MORNING  AND 2 PILLS AT NIGHT
     Route: 048
     Dates: start: 20200417, end: 20200418
  2. CONTRAVE [Suspect]
     Active Substance: BUPROPION HYDROCHLORIDE\NALTREXONE HYDROCHLORIDE
     Indication: MULTIMORBIDITY

REACTIONS (3)
  - Nausea [Recovered/Resolved]
  - Drug titration error [Unknown]
  - Product communication issue [Unknown]

NARRATIVE: CASE EVENT DATE: 20200417
